FAERS Safety Report 16613062 (Version 1)
Quarter: 2019Q3

REPORT INFORMATION
  Report Type: Spontaneous
  Country: US (occurrence: US)
  Receive Date: 20190722
  Receipt Date: 20190722
  Transmission Date: 20191004
  Serious: Yes (Hospitalization, Disabling)
  Sender: FDA-Public Use
  Company Number: None

PATIENT
  Age: 72 Year
  Sex: Male
  Weight: 69.75 kg

DRUGS (6)
  1. TAMSULOSIN [Concomitant]
     Active Substance: TAMSULOSIN
  2. COQ10 [Concomitant]
     Active Substance: UBIDECARENONE
  3. GLIMEPIRIDE. [Concomitant]
     Active Substance: GLIMEPIRIDE
  4. ATORVASTATIN 40MG [Suspect]
     Active Substance: ATORVASTATIN
     Indication: BLOOD CHOLESTEROL
  5. METFORMIN [Concomitant]
     Active Substance: METFORMIN HYDROCHLORIDE
  6. ASPIRIN. [Concomitant]
     Active Substance: ASPIRIN

REACTIONS (3)
  - Gait disturbance [None]
  - Loss of personal independence in daily activities [None]
  - Myopathy [None]

NARRATIVE: CASE EVENT DATE: 20170101
